FAERS Safety Report 19582345 (Version 1)
Quarter: 2021Q3

REPORT INFORMATION
  Report Type: Spontaneous
  Country: US (occurrence: US)
  Receive Date: 20210720
  Receipt Date: 20210720
  Transmission Date: 20211014
  Serious: No
  Sender: FDA-Public Use
  Company Number: US-BEH-2021134092

PATIENT
  Age: 5 Year
  Sex: Male

DRUGS (2)
  1. IDELVION [Suspect]
     Active Substance: COAGULATION FACTOR IX RECOMBINANT HUMAN
     Indication: FACTOR IX DEFICIENCY
     Dosage: 1000 INTERNATIONAL UNIT, QW
     Route: 042
     Dates: start: 20190813
  2. IDELVION [Suspect]
     Active Substance: COAGULATION FACTOR IX RECOMBINANT HUMAN
     Indication: FACTOR IX DEFICIENCY
     Dosage: 1000 INTERNATIONAL UNIT, QW
     Route: 042
     Dates: start: 20190813

REACTIONS (2)
  - Product preparation error [Unknown]
  - Pyrexia [Unknown]

NARRATIVE: CASE EVENT DATE: 20210703
